FAERS Safety Report 7991706-6 (Version None)
Quarter: 2011Q4

REPORT INFORMATION
  Report Type: 
  Country: None (occurrence: None)
  Receive Date: 20111219
  Receipt Date: 20111206
  Transmission Date: 20120403
  Serious: Yes (Hospitalization)
  Sender: FDA-Public Use
  Company Number: PHFR2011GB007096

PATIENT
  Sex: Female

DRUGS (1)
  1. CLOZARIL [Suspect]
     Route: 048

REACTIONS (1)
  - MENTAL DISORDER [None]
